FAERS Safety Report 16029370 (Version 1)
Quarter: 2019Q1

REPORT INFORMATION
  Report Type: Spontaneous
  Country: US (occurrence: US)
  Receive Date: 20190304
  Receipt Date: 20190304
  Transmission Date: 20190418
  Serious: No
  Sender: FDA-Public Use
  Company Number: US-IMPAX LABORATORIES, LLC-2018-IPXL-01403

PATIENT
  Sex: Male

DRUGS (2)
  1. RYTARY [Suspect]
     Active Substance: CARBIDOPA\LEVODOPA
     Indication: PARKINSON^S DISEASE
     Dosage: 61.25/245 MG, ONE CAPSULE, FOUR TIMES A DAY (4 /DAY) AT 9 AM, 1 PM, 5 PM AND 9 PM
     Route: 048
     Dates: start: 201804
  2. AZILECT [Concomitant]
     Active Substance: RASAGILINE MESYLATE
     Indication: PARKINSON^S DISEASE
     Dosage: 1 MG, ONCE A DAY (QD), UNK
     Route: 048

REACTIONS (3)
  - Drug effect variable [Unknown]
  - Therapeutic response shortened [Unknown]
  - Drug effect delayed [Unknown]
